FAERS Safety Report 5886574-2 (Version None)
Quarter: 2008Q3

REPORT INFORMATION
  Report Type: 
  Country: None (occurrence: None)
  Receive Date: 20080917
  Receipt Date: 20071205
  Transmission Date: 20090109
  Serious: Yes (Hospitalization, Other)
  Sender: FDA-Public Use
  Company Number: US-ASTRAZENECA-2006UW21283

PATIENT
  Age: 24 Year
  Sex: Female
  Weight: 74.8 kg

DRUGS (36)
  1. SEROQUEL [Suspect]
     Indication: ANXIETY
     Route: 048
     Dates: start: 20030708, end: 20030710
  2. SEROQUEL [Suspect]
     Indication: DEPRESSION
     Route: 048
     Dates: start: 20030708, end: 20030710
  3. SEROQUEL [Suspect]
     Indication: BIPOLAR DISORDER
     Route: 048
     Dates: start: 20030708, end: 20030710
  4. SEROQUEL [Suspect]
     Route: 048
     Dates: start: 20030711
  5. SEROQUEL [Suspect]
     Route: 048
     Dates: start: 20030711
  6. SEROQUEL [Suspect]
     Route: 048
     Dates: start: 20030711
  7. PAXIL [Concomitant]
     Dates: start: 20011205, end: 20020801
  8. EFFEXOR XR [Concomitant]
     Dosage: 75 MG THEN 40 MG
     Dates: start: 20030304
  9. ELAVIL [Concomitant]
     Dates: start: 20030304, end: 20030708
  10. REMERON [Concomitant]
     Dates: end: 20011205
  11. HYDROCODONE BITARTRATE [Concomitant]
     Dates: start: 20031013
  12. AZITHROMYCIN [Concomitant]
  13. OXYCODONE HCL [Concomitant]
     Dates: start: 20070619
  14. DIAZEPAM [Concomitant]
     Dates: start: 20071112
  15. PROMETHAZINE [Concomitant]
     Dates: start: 20050902
  16. ZOFRAN [Concomitant]
  17. FLEXTRA [Concomitant]
     Dates: start: 20040331
  18. TIZANIDINE HCL [Concomitant]
  19. VALTREX [Concomitant]
     Dates: start: 20040709
  20. AMOXICILLIN [Concomitant]
     Dates: start: 20050511
  21. LISINOPRIL [Concomitant]
     Dates: start: 20050708
  22. ACETAMINOPHEN [Concomitant]
     Dates: start: 20050708
  23. HUMULIN [Concomitant]
     Dates: start: 20021227
  24. DICLOFENAC [Concomitant]
     Dates: start: 20030816
  25. BEXTRA [Concomitant]
  26. LANTUS [Concomitant]
     Dates: start: 20030929
  27. HUMALOG [Concomitant]
     Dates: start: 20011107
  28. NEURONTIN [Concomitant]
     Dates: start: 20031014
  29. MIGRIN-A [Concomitant]
     Dates: start: 20040324
  30. KETOROLAC TROMETHAMINE [Concomitant]
     Dates: start: 20040724
  31. PROTONIX [Concomitant]
  32. PHENERGAN HCL [Concomitant]
  33. ATIVAN [Concomitant]
  34. ZELNORM [Concomitant]
  35. CELEBREX [Concomitant]
  36. ZOLOFT [Concomitant]

REACTIONS (9)
  - CHOLECYSTECTOMY [None]
  - DIABETES MELLITUS [None]
  - DIABETIC GASTROPARESIS [None]
  - DIABETIC KETOACIDOSIS [None]
  - DIABETIC NEUROPATHY [None]
  - HYPERGLYCAEMIA [None]
  - HYSTERECTOMY [None]
  - PANCREATITIS [None]
  - VOMITING [None]
